FAERS Safety Report 13954507 (Version 2)
Quarter: 2017Q3

REPORT INFORMATION
  Report Type: Spontaneous
  Country: FR (occurrence: FR)
  Receive Date: 20170911
  Receipt Date: 20170925
  Transmission Date: 20171128
  Serious: Yes (Hospitalization)
  Sender: FDA-Public Use
  Company Number: FR-BAYER-2017-169616

PATIENT
  Age: 48 Year
  Sex: Female

DRUGS (1)
  1. MIRENA [Suspect]
     Active Substance: LEVONORGESTREL
     Indication: CONTRACEPTION
     Dosage: 20 MCG/24HR, CONT
     Route: 015
     Dates: start: 20130115, end: 20170822

REACTIONS (7)
  - Diffuse alopecia [Recovered/Resolved]
  - Abdominal distension [Recovered/Resolved]
  - Anxiety [Recovered/Resolved]
  - Loss of libido [Recovered/Resolved]
  - Insomnia [Not Recovered/Not Resolved]
  - Palpitations [Recovering/Resolving]
  - Blood pressure increased [Not Recovered/Not Resolved]

NARRATIVE: CASE EVENT DATE: 2015
